FAERS Safety Report 24899557 (Version 9)
Quarter: 2025Q2

REPORT INFORMATION
  Report Type: Spontaneous
  Country: US (occurrence: US)
  Receive Date: 20250129
  Receipt Date: 20250505
  Transmission Date: 20250716
  Serious: No
  Sender: DAIICHI
  Company Number: US-DAIICHI SANKYO, INC.-DS-2025-122231-USAA

PATIENT
  Age: 44 Year
  Sex: Female

DRUGS (3)
  1. TURALIO [Suspect]
     Active Substance: PEXIDARTINIB HYDROCHLORIDE
     Indication: Metabolic disorder
     Dosage: 125 MG, BID (1 CAPSULE BY MOUTH TWICE DAILY (AM+PM))
     Route: 048
     Dates: start: 20250213
  2. TURALIO [Suspect]
     Active Substance: PEXIDARTINIB HYDROCHLORIDE
     Indication: Connective tissue neoplasm
  3. TURALIO [Suspect]
     Active Substance: PEXIDARTINIB HYDROCHLORIDE
     Indication: Soft tissue neoplasm

REACTIONS (28)
  - Blood cholesterol increased [Not Recovered/Not Resolved]
  - Blepharospasm [Recovered/Resolved]
  - Eyelid ptosis [Recovered/Resolved]
  - Balance disorder [Recovered/Resolved]
  - Nasal congestion [Recovered/Resolved]
  - Eyelid ptosis [Recovered/Resolved]
  - Aphonia [Recovered/Resolved]
  - Blood cholesterol increased [Recovered/Resolved]
  - Blood iron decreased [Recovered/Resolved]
  - Cough [Recovered/Resolved]
  - Flushing [Recovered/Resolved]
  - Illness [Recovered/Resolved]
  - Blepharospasm [Recovered/Resolved]
  - Constipation [Not Recovered/Not Resolved]
  - Eye swelling [Recovered/Resolved]
  - Fatigue [Recovered/Resolved]
  - Nausea [Recovered/Resolved]
  - Hair colour changes [Recovered/Resolved]
  - Nausea [Recovered/Resolved]
  - Asthenia [Recovered/Resolved]
  - Fatigue [Recovered/Resolved]
  - Constipation [Recovered/Resolved]
  - Asthenia [Recovered/Resolved]
  - Fatigue [Recovered/Resolved]
  - Fatigue [Not Recovered/Not Resolved]
  - Pyrexia [Recovered/Resolved]
  - Off label use [Not Recovered/Not Resolved]
  - Off label use [Not Recovered/Not Resolved]

NARRATIVE: CASE EVENT DATE: 20250127
